FAERS Safety Report 5294057-6 (Version None)
Quarter: 2007Q2

REPORT INFORMATION
  Report Type: 
  Country: None (occurrence: None)
  Receive Date: 20070406
  Receipt Date: 20070402
  Transmission Date: 20071010
  Serious: Yes (Death, Hospitalization, Other)
  Sender: FDA-Public Use
  Company Number: 163-21880-06070445

PATIENT
  Age: 53 Year
  Sex: Female
  Weight: 68.0396 kg

DRUGS (10)
  1. REVLIMID [Suspect]
     Indication: MYELODYSPLASTIC SYNDROME
     Dosage: 5 MG, 1 IN 1 D, ORAL
     Route: 048
     Dates: start: 20060406, end: 20060801
  2. DESFERAL [Concomitant]
  3. METFORMIN HCL [Concomitant]
  4. PROZAC [Concomitant]
  5. PRINIVIL [Concomitant]
  6. DIFLUCAN [Concomitant]
  7. XANAX [Concomitant]
  8. BACLOFEN [Concomitant]
  9. VICODIN [Concomitant]
  10. FOSAMAX [Concomitant]

REACTIONS (6)
  - FUNGAL INFECTION [None]
  - IMMUNE SYSTEM DISORDER [None]
  - INFECTION [None]
  - OEDEMA PERIPHERAL [None]
  - PETECHIAE [None]
  - SKIN LESION [None]
